FAERS Safety Report 20941726 (Version 10)
Quarter: 2023Q2

REPORT INFORMATION
  Report Type: Report from Study
  Country: US (occurrence: US)
  Receive Date: 20220610
  Receipt Date: 20230626
  Transmission Date: 20230721
  Serious: No
  Sender: FDA-Public Use
  Company Number: US-NOVARTISTESTPH-NVSC2022US131024

PATIENT
  Age: 65 Year
  Sex: Female
  Weight: 49.887 kg

DRUGS (13)
  1. TREPROSTINIL [Suspect]
     Active Substance: TREPROSTINIL
     Indication: Pulmonary arterial hypertension
     Dosage: 16 NG/KG/ MIN, CONT (STRENGTH: 2.5 MG/ML
     Route: 058
     Dates: start: 20220530
  2. TREPROSTINIL [Suspect]
     Active Substance: TREPROSTINIL
     Dosage: 49 NG/KG/ MIN, CONT (STRENGTH: 5 MG/ML
     Route: 058
     Dates: start: 20220530
  3. TREPROSTINIL [Suspect]
     Active Substance: TREPROSTINIL
     Dosage: 40 NG/KG/ MIN, CONT (STRENGTH: 2.5MG/ML)
     Route: 058
  4. TREPROSTINIL [Suspect]
     Active Substance: TREPROSTINIL
     Dosage: 40 NG/KG/ MIN, CONT (STRENGTH: 5MG/ML)
     Route: 058
  5. TREPROSTINIL [Suspect]
     Active Substance: TREPROSTINIL
     Dosage: 21 NG/KG/MIN, CONT
     Route: 058
     Dates: start: 20220531
  6. TREPROSTINIL [Suspect]
     Active Substance: TREPROSTINIL
     Dosage: 43 NG/KG/ MIN, CONT (STRENGTH:  5MG/ML)
     Route: 058
  7. TREPROSTINIL [Suspect]
     Active Substance: TREPROSTINIL
     Dosage: 49 NG/KG/MIN, CONT (STRENGTH: 5MG/ML)
     Route: 058
  8. TREPROSTINIL [Suspect]
     Active Substance: TREPROSTINIL
     Dosage: 60 NG/KG/ MIN, CONT (STRENGTH: 5 MG/ML)
     Route: 058
  9. TREPROSTINIL [Suspect]
     Active Substance: TREPROSTINIL
     Dosage: 49 NG/KG/MIN, CONT (STRENGTH: 5MG/ML)
     Route: 058
  10. TADALAFIL [Concomitant]
     Active Substance: TADALAFIL
     Indication: Product used for unknown indication
     Dosage: UNK
     Route: 065
  11. OFEV [Concomitant]
     Active Substance: NINTEDANIB
     Indication: Product used for unknown indication
     Dosage: UNK
     Route: 065
  12. OPSUMIT [Concomitant]
     Active Substance: MACITENTAN
     Indication: Product used for unknown indication
     Dosage: UNK
     Route: 065
  13. DOXYCYCLINE [Concomitant]
     Active Substance: DOXYCYCLINE
     Indication: Product used for unknown indication
     Dosage: (PRESCRIBED ON 11 OCT 2022)
     Route: 065

REACTIONS (14)
  - Hypersensitivity [Unknown]
  - Ear infection [Unknown]
  - Nasopharyngitis [Unknown]
  - Weight decreased [Unknown]
  - Influenza [Unknown]
  - Nasal congestion [Unknown]
  - Pain in extremity [Unknown]
  - Diarrhoea [Unknown]
  - Muscle spasms [Recovered/Resolved]
  - Fatigue [Recovered/Resolved]
  - Infusion site pain [Unknown]
  - Injection site infection [Unknown]
  - Dizziness [Unknown]
  - Headache [Unknown]

NARRATIVE: CASE EVENT DATE: 20220602
